FAERS Safety Report 6030019-9 (Version None)
Quarter: 2009Q1

REPORT INFORMATION
  Report Type: 
  Country: None (occurrence: None)
  Receive Date: 20090105
  Receipt Date: 20090105
  Transmission Date: 20090719
  Serious: Yes (Other)
  Sender: FDA-Public Use
  Company Number: None

PATIENT
  Age: 47 Year
  Sex: Female
  Weight: 46.7205 kg

DRUGS (2)
  1. FERRLECIT [Suspect]
     Indication: ANAEMIA
     Dosage: 2ND IV DRIP
     Route: 041
     Dates: start: 20081219, end: 20081219
  2. FERRLECIT [Suspect]
     Indication: ANAEMIA
     Dosage: 2ND IV DRIP
     Route: 041
     Dates: start: 20081231, end: 20081231

REACTIONS (22)
  - AMNESIA [None]
  - ASTHENIA [None]
  - ASTHMA [None]
  - BLOOD IRON DECREASED [None]
  - CONFUSIONAL STATE [None]
  - DEAFNESS [None]
  - DIARRHOEA [None]
  - DIZZINESS [None]
  - DYSPNOEA [None]
  - DYSSTASIA [None]
  - FEELING ABNORMAL [None]
  - GAIT DISTURBANCE [None]
  - HAND FRACTURE [None]
  - HEADACHE [None]
  - MALAISE [None]
  - MENIERE'S DISEASE [None]
  - PAIN [None]
  - PERONEAL NERVE PALSY [None]
  - SPINAL MENINGEAL CYST [None]
  - TOBACCO ABUSE [None]
  - VERTIGO [None]
  - VISION BLURRED [None]
